FAERS Safety Report 8369878-3 (Version None)
Quarter: 2012Q2

REPORT INFORMATION
  Report Type: 
  Country: None (occurrence: None)
  Receive Date: 20120518
  Receipt Date: 20120507
  Transmission Date: 20120825
  Serious: Yes (Other)
  Sender: FDA-Public Use
  Company Number: US-JNJFOC-20120407758

PATIENT
  Sex: Female
  Weight: 81.65 kg

DRUGS (70)
  1. REMICADE [Suspect]
     Route: 042
     Dates: start: 20090522
  2. REMICADE [Suspect]
     Route: 042
     Dates: start: 20100629
  3. REMICADE [Suspect]
     Route: 042
     Dates: start: 20101217
  4. REMICADE [Suspect]
     Route: 042
     Dates: start: 20111014
  5. REMICADE [Suspect]
     Route: 042
     Dates: start: 20101217
  6. SULFASALAZINE [Concomitant]
     Dosage: 2 TABLETS AT 11:00 AM AND 2 AT 16:00 HOURS
     Route: 048
  7. MULTI-VITAMINS [Concomitant]
     Route: 048
  8. CALCIUM [Concomitant]
     Route: 048
  9. FOLIC ACID [Concomitant]
     Route: 048
  10. IRON [Concomitant]
     Route: 048
  11. REMICADE [Suspect]
     Route: 042
     Dates: start: 20090130
  12. REMICADE [Suspect]
     Route: 042
     Dates: start: 20090327
  13. REMICADE [Suspect]
     Route: 042
     Dates: start: 20100108
  14. REMICADE [Suspect]
     Route: 042
     Dates: start: 20100403
  15. REMICADE [Suspect]
     Route: 042
     Dates: start: 20101025
  16. REMICADE [Suspect]
     Route: 042
     Dates: start: 20081006
  17. REMICADE [Suspect]
     Route: 042
     Dates: start: 20090831
  18. REMICADE [Suspect]
     Route: 042
     Dates: start: 20080602
  19. ASPIRIN [Concomitant]
     Route: 065
  20. REMICADE [Suspect]
     Route: 042
     Dates: start: 20090831
  21. REMICADE [Suspect]
     Indication: RHEUMATOID ARTHRITIS
     Route: 042
     Dates: start: 20080519
  22. REMICADE [Suspect]
     Route: 042
     Dates: start: 20080630
  23. REMICADE [Suspect]
     Route: 042
     Dates: start: 20100108
  24. REMICADE [Suspect]
     Route: 042
     Dates: start: 20091026
  25. REMICADE [Suspect]
     Route: 042
     Dates: start: 20110624
  26. REMICADE [Suspect]
     Route: 042
     Dates: start: 20110819
  27. REMICADE [Suspect]
     Dosage: TOTAL OF 27 INFUSIONS
     Route: 042
     Dates: start: 20120330
  28. REMICADE [Suspect]
     Route: 042
     Dates: start: 20090130
  29. REMICADE [Suspect]
     Route: 042
     Dates: start: 20090619
  30. REMICADE [Suspect]
     Route: 042
     Dates: start: 20100305
  31. REMICADE [Suspect]
     Route: 042
     Dates: start: 20110225
  32. REMICADE [Suspect]
     Route: 042
     Dates: start: 20110624
  33. REMICADE [Suspect]
     Route: 042
     Dates: start: 20111209
  34. REMICADE [Suspect]
     Dosage: TOTAL OF 27 INFUSIONS
     Route: 042
     Dates: start: 20120330
  35. LISINOPRIL [Concomitant]
     Indication: HYPERTENSION
     Route: 048
  36. AMOXICILLIN [Concomitant]
     Dosage: 4 TABLETS ALL AT ONCE, 1 HOUR BEFORE ANY DENTAL OR SURGICAL PROCEDURE
     Route: 048
  37. FLAX SEED OIL [Concomitant]
     Route: 048
  38. GARLIC [Concomitant]
     Route: 048
  39. REMICADE [Suspect]
     Route: 042
     Dates: start: 20080630
  40. REMICADE [Suspect]
     Route: 042
     Dates: start: 20100903
  41. REMICADE [Suspect]
     Route: 042
     Dates: start: 20090327
  42. REMICADE [Suspect]
     Route: 042
     Dates: start: 20100403
  43. REMICADE [Suspect]
     Route: 042
     Dates: start: 20100629
  44. REMICADE [Suspect]
     Route: 042
     Dates: start: 20101025
  45. METHOTREXATE [Concomitant]
     Dosage: ALL TABLETS AT ONCE IN AM ON FRIDAY
     Route: 048
  46. FUROSEMIDE [Concomitant]
     Dosage: 0.5 TABLET IN MORNING
     Route: 048
  47. TYLENOL (CAPLET) [Concomitant]
     Indication: PAIN
     Route: 048
  48. REMICADE [Suspect]
     Route: 042
     Dates: start: 20080811
  49. REMICADE [Suspect]
     Route: 042
     Dates: start: 20110218
  50. REMICADE [Suspect]
     Route: 042
     Dates: start: 20110225
  51. REMICADE [Suspect]
     Route: 042
     Dates: start: 20080811
  52. REMICADE [Suspect]
     Route: 042
     Dates: start: 20081205
  53. REMICADE [Suspect]
     Route: 042
     Dates: start: 20090522
  54. REMICADE [Suspect]
     Route: 042
     Dates: start: 20110819
  55. REMICADE [Suspect]
     Route: 042
     Dates: start: 20120203
  56. UNKNOWN MEDICATION [Concomitant]
     Indication: PAIN
     Dosage: 5/325MG
     Route: 048
  57. REMICADE [Suspect]
     Indication: COLITIS
     Route: 042
     Dates: start: 20080602
  58. REMICADE [Suspect]
     Route: 042
     Dates: start: 20120203
  59. REMICADE [Suspect]
     Route: 042
     Dates: start: 20080519
  60. REMICADE [Suspect]
     Route: 042
     Dates: start: 20100903
  61. REMICADE [Suspect]
     Route: 042
     Dates: start: 20110218
  62. JANUVIA [Concomitant]
     Route: 048
  63. NORCO [Concomitant]
     Indication: PAIN
     Dosage: DOSE: 5/325; 1 IN AM, 1 BEFORE BED AS NEEDED
     Route: 065
  64. REMICADE [Suspect]
     Route: 042
     Dates: start: 20081006
  65. REMICADE [Suspect]
     Route: 042
     Dates: start: 20081205
  66. REMICADE [Suspect]
     Route: 042
     Dates: start: 20090619
  67. REMICADE [Suspect]
     Route: 042
     Dates: start: 20100305
  68. REMICADE [Suspect]
     Route: 042
     Dates: start: 20111209
  69. REMICADE [Suspect]
     Route: 042
     Dates: start: 20091026
  70. REMICADE [Suspect]
     Route: 042
     Dates: start: 20111014

REACTIONS (7)
  - SKIN REACTION [None]
  - WEIGHT INCREASED [None]
  - CHILLS [None]
  - INFUSION RELATED REACTION [None]
  - THERMAL BURN [None]
  - VASCULITIS [None]
  - PAIN IN EXTREMITY [None]
